FAERS Safety Report 19935779 (Version 1)
Quarter: 2021Q4

REPORT INFORMATION
  Report Type: Spontaneous
  Country: HU (occurrence: HU)
  Receive Date: 20211008
  Receipt Date: 20211008
  Transmission Date: 20220303
  Serious: Yes (Hospitalization, Other)
  Sender: FDA-Public Use
  Company Number: HU-002147023-NVSC2021HU071790

PATIENT
  Age: 72 Year
  Sex: Male
  Weight: 88 kg

DRUGS (36)
  1. ATORVASTATIN [Suspect]
     Active Substance: ATORVASTATIN
     Indication: Myocardial ischaemia
     Dosage: 40 MG (IN THE EVENING)
     Route: 065
     Dates: start: 201910
  2. ATORVASTATIN [Suspect]
     Active Substance: ATORVASTATIN
     Dosage: 40 MILLIGRAM, QD
     Route: 048
  3. ATORVASTATIN [Suspect]
     Active Substance: ATORVASTATIN
     Dosage: 40 MILLIGRAM, QD
     Route: 048
  4. METFORMIN [Suspect]
     Active Substance: METFORMIN HYDROCHLORIDE
     Indication: Diabetes mellitus
     Dosage: 500 MG, TID
     Route: 065
     Dates: start: 201910, end: 202002
  5. METFORMIN [Suspect]
     Active Substance: METFORMIN HYDROCHLORIDE
     Dosage: 750 MG, BID
     Route: 065
     Dates: start: 2020
  6. METFORMIN [Suspect]
     Active Substance: METFORMIN HYDROCHLORIDE
     Dosage: 500 MG, TID
     Route: 048
     Dates: start: 2019
  7. METFORMIN [Suspect]
     Active Substance: METFORMIN HYDROCHLORIDE
     Dosage: UNK
     Dates: end: 20200216
  8. PANTOPRAZOLE [Suspect]
     Active Substance: PANTOPRAZOLE
     Indication: Gastrointestinal disorder
     Dosage: 20 MG (IN THE MORNING)
     Route: 065
     Dates: start: 201910
  9. SACUBITRIL\VALSARTAN [Suspect]
     Active Substance: SACUBITRIL\VALSARTAN
     Indication: Cardiac failure
     Dosage: UNK, BID (STRENGTH 49/51)
     Route: 065
     Dates: start: 2020
  10. SACUBITRIL\VALSARTAN [Suspect]
     Active Substance: SACUBITRIL\VALSARTAN
     Dosage: 50 MG, BID (STRENGTH: 24/26)
     Route: 065
     Dates: start: 201910, end: 201912
  11. SACUBITRIL\VALSARTAN [Suspect]
     Active Substance: SACUBITRIL\VALSARTAN
     Dosage: 10 MG, BID (STRENGTH 49/51)
     Route: 065
     Dates: start: 201912, end: 2020
  12. SACUBITRIL\VALSARTAN [Suspect]
     Active Substance: SACUBITRIL\VALSARTAN
     Dosage: 51 MG, BID (49/51 MG)
     Route: 048
     Dates: start: 20191013
  13. SACUBITRIL\VALSARTAN [Suspect]
     Active Substance: SACUBITRIL\VALSARTAN
     Dosage: 51 MG, BID (49/51 MG)
     Route: 048
     Dates: start: 20191013
  14. PERINDOPRIL [Suspect]
     Active Substance: PERINDOPRIL
     Indication: Product used for unknown indication
     Dosage: 4 MG (IN THE MORNING)
     Route: 065
  15. CARVEDILOL [Suspect]
     Active Substance: CARVEDILOL
     Indication: Product used for unknown indication
     Dosage: 6.25 UNK, BID
     Route: 065
     Dates: start: 201907
  16. BISOPROLOL [Suspect]
     Active Substance: BISOPROLOL
     Indication: Myocardial ischaemia
     Dosage: UNK (5-0-2.5 MG)
     Route: 065
     Dates: start: 201910
  17. BISOPROLOL [Suspect]
     Active Substance: BISOPROLOL
     Dosage: 5 MG (IN THE MORNING)
     Route: 065
     Dates: start: 2020
  18. BISOPROLOL [Suspect]
     Active Substance: BISOPROLOL
     Dosage: UNK (5-0-2.5 MG)
     Route: 065
  19. FUROSEMIDE [Concomitant]
     Active Substance: FUROSEMIDE
     Indication: Product used for unknown indication
     Dosage: UNK (1-1-0)
     Route: 065
     Dates: start: 2020
  20. CORDARONE [Concomitant]
     Active Substance: AMIODARONE HYDROCHLORIDE
     Indication: Product used for unknown indication
     Dosage: 0.8 ML, BID
     Route: 065
     Dates: start: 201511
  21. ATORVASTATIN CALCIUM [Concomitant]
     Active Substance: ATORVASTATIN CALCIUM
     Indication: Product used for unknown indication
     Dosage: 40 MG
     Route: 065
     Dates: start: 201511
  22. MAGNESIUM [Concomitant]
     Active Substance: MAGNESIUM
     Indication: Product used for unknown indication
     Dosage: UNK
     Route: 065
     Dates: start: 201907
  23. MAGNEROT                           /01486814/ [Concomitant]
     Indication: Product used for unknown indication
     Dosage: UNK (1X1)
     Route: 065
     Dates: start: 201511
  24. AMIODARONE [Concomitant]
     Active Substance: AMIODARONE
     Indication: Product used for unknown indication
     Dosage: 200 MG (1X IN THE MORNING)
     Route: 065
     Dates: start: 201511
  25. ASPIRIN [Concomitant]
     Active Substance: ASPIRIN
     Indication: Product used for unknown indication
     Dosage: 100 MG, QD
     Route: 065
     Dates: start: 201511
  26. METHIMAZOLE [Concomitant]
     Active Substance: METHIMAZOLE
     Indication: Product used for unknown indication
     Dosage: 10 MG, TID
     Route: 065
     Dates: start: 201511
  27. METHIMAZOLE [Concomitant]
     Active Substance: METHIMAZOLE
     Dosage: 0.5 MG, QD
     Route: 065
     Dates: start: 201907
  28. METHIMAZOLE [Concomitant]
     Active Substance: METHIMAZOLE
     Dosage: 5 MG (IN THE MORNING)
     Route: 065
     Dates: start: 201910
  29. PERINDOPRIL [Concomitant]
     Active Substance: PERINDOPRIL
     Indication: Product used for unknown indication
     Dosage: 4 MG, BID
     Route: 065
     Dates: start: 201511
  30. INSPRA [Concomitant]
     Active Substance: EPLERENONE
     Indication: Product used for unknown indication
     Dosage: 50 MG, QD
     Route: 065
     Dates: start: 201511
  31. SYNCUMAR [Concomitant]
     Active Substance: ACENOCOUMAROL
     Indication: Product used for unknown indication
     Dosage: UNK (1 MG-0.5 MG/1.5 MG, CHANGED DAILY)
     Route: 065
     Dates: start: 201511
  32. METFORMIN HYDROCHLORIDE [Concomitant]
     Active Substance: METFORMIN HYDROCHLORIDE
     Indication: Product used for unknown indication
     Dosage: UNK (1X1.5 MG, IN THE EVENING)
     Route: 065
     Dates: start: 201907
  33. CARVEDILOL [Concomitant]
     Active Substance: CARVEDILOL
     Indication: Product used for unknown indication
     Dosage: 6.25 MG, BID
     Route: 065
     Dates: start: 201511
  34. TORVATEC [Concomitant]
     Indication: Product used for unknown indication
     Dosage: 40 MG (1X1 IN THE EVENING)
     Route: 065
     Dates: start: 201907
  35. EPLERENONE [Concomitant]
     Active Substance: EPLERENONE
     Indication: Product used for unknown indication
     Dosage: 50 MG (IN THE MORNING)
     Route: 065
     Dates: start: 201910, end: 201910
  36. EPLERENONE [Concomitant]
     Active Substance: EPLERENONE
     Dosage: 25 MG
     Route: 065
     Dates: start: 201910, end: 202002

REACTIONS (42)
  - Ventricular tachycardia [Recovered/Resolved]
  - Cardiac failure [Recovered/Resolved]
  - Azotaemia [Recovered/Resolved]
  - Glomerular filtration rate decreased [Unknown]
  - Altered state of consciousness [Recovered/Resolved]
  - Ejection fraction decreased [Unknown]
  - Diabetes mellitus [Unknown]
  - Intestinal fistula [Unknown]
  - Carotid artery stenosis [Unknown]
  - Myocardial ischaemia [Unknown]
  - Renal impairment [Recovered/Resolved]
  - Mitral valve incompetence [Unknown]
  - Congestive cardiomyopathy [Unknown]
  - Pulmonary congestion [Unknown]
  - Ventricular septal defect [Unknown]
  - Weight increased [Unknown]
  - Blood cyanide increased [Unknown]
  - Blood creatinine increased [Unknown]
  - Blood glucose increased [Unknown]
  - Blood magnesium increased [Unknown]
  - Blood pressure increased [Unknown]
  - Blood sodium decreased [Unknown]
  - Hypokinesia [Unknown]
  - Activated partial thromboplastin time prolonged [Unknown]
  - Campylobacter infection [Unknown]
  - Blood pressure decreased [Unknown]
  - Protein total decreased [Unknown]
  - Orthopnoea [Unknown]
  - Sinus bradycardia [Unknown]
  - Dyspnoea [Unknown]
  - Brain natriuretic peptide increased [Unknown]
  - High density lipoprotein decreased [Unknown]
  - Bronchitis [Unknown]
  - Brain natriuretic peptide abnormal [Unknown]
  - C-reactive protein increased [Unknown]
  - Diarrhoea [Unknown]
  - International normalised ratio increased [Unknown]
  - Chills [Unknown]
  - Asthenia [Unknown]
  - Blood calcium decreased [Unknown]
  - Right ventricular dysfunction [Unknown]
  - Weight decreased [Recovering/Resolving]

NARRATIVE: CASE EVENT DATE: 20160801
